FAERS Safety Report 7625439-2 (Version None)
Quarter: 2011Q3

REPORT INFORMATION
  Report Type: 
  Country: None (occurrence: None)
  Receive Date: 20110713
  Receipt Date: 20110628
  Transmission Date: 20111222
  Serious: Yes (Hospitalization)
  Sender: FDA-Public Use
  Company Number: 2011MA008262

PATIENT
  Age: 35 Year
  Sex: Female

DRUGS (1)
  1. PHENTERMINE HCL [Suspect]
     Indication: WEIGHT DECREASED
     Dosage: 37.5 MG;QD
     Dates: start: 20070101, end: 20090816

REACTIONS (11)
  - NERVOUSNESS [None]
  - HALLUCINATION, AUDITORY [None]
  - PERSECUTORY DELUSION [None]
  - INSOMNIA [None]
  - DELUSION [None]
  - ANXIETY [None]
  - DYSPHORIA [None]
  - AGITATION [None]
  - IRRITABILITY [None]
  - PSYCHOTIC DISORDER [None]
  - CONFUSIONAL STATE [None]
